FAERS Safety Report 20637443 (Version 1)
Quarter: 2022Q1

REPORT INFORMATION
  Report Type: Spontaneous
  Country: US (occurrence: None)
  Receive Date: 20220318
  Receipt Date: 20220318
  Transmission Date: 20220423
  Serious: No
  Sender: FDA-Public Use
  Company Number: None

PATIENT
  Age: 25 Year
  Sex: Female
  Weight: 63 kg

DRUGS (4)
  1. UNSPECIFIED INGREDIENT [Suspect]
     Active Substance: UNSPECIFIED INGREDIENT
     Indication: Computerised tomogram
     Dosage: OTHER QUANTITY : 2 BOTTLES;?OTHER FREQUENCY : ONCE;?
     Route: 048
     Dates: start: 20220318, end: 20220318
  2. IODINE [Suspect]
     Active Substance: IODINE
  3. OMEPRAZOLE [Concomitant]
     Active Substance: OMEPRAZOLE
  4. CALCIUM\CHOLECALCIFEROL [Concomitant]
     Active Substance: CALCIUM\CHOLECALCIFEROL

REACTIONS (1)
  - Diarrhoea [None]

NARRATIVE: CASE EVENT DATE: 20220318
